FAERS Safety Report 5816631-8 (Version None)
Quarter: 2008Q3

REPORT INFORMATION
  Report Type: 
  Country: None (occurrence: None)
  Receive Date: 20080721
  Receipt Date: 20080709
  Transmission Date: 20090109
  Serious: Yes (Death, Life-Threatening, Hospitalization, Other)
  Sender: FDA-Public Use
  Company Number: HQWYE200819NOV03

PATIENT
  Sex: Male

DRUGS (5)
  1. GEMTUZUMAB OZOGAMICIN [Suspect]
     Route: 042
     Dates: start: 20031112, end: 20031112
  2. CIPROFLOXACIN [Concomitant]
     Dosage: UNKNOWN
     Dates: start: 20031105, end: 20031117
  3. SOLU-MEDROL [Concomitant]
     Dosage: UNKNOWN
     Dates: start: 20031112, end: 20031112
  4. CYTARABINE [Suspect]
     Dosage: TOTAL DOSE 200 MG
     Route: 065
     Dates: start: 20031106, end: 20031115
  5. IDARUBICIN HCL [Suspect]
     Dosage: TOTAL DOSE 72MG
     Route: 065
     Dates: start: 20031106, end: 20031110

REACTIONS (6)
  - ASPERGILLOSIS [None]
  - DISSEMINATED INTRAVASCULAR COAGULATION [None]
  - FEBRILE NEUTROPENIA [None]
  - HEPATIC FAILURE [None]
  - PANCYTOPENIA [None]
  - RENAL FAILURE [None]
